FAERS Safety Report 24806226 (Version 4)
Quarter: 2025Q1

REPORT INFORMATION
  Report Type: Report from Study
  Country: US (occurrence: US)
  Receive Date: 20250103
  Receipt Date: 20250324
  Transmission Date: 20250408
  Serious: Yes (Other)
  Sender: ABBVIE
  Company Number: US-ABBVIE-6069136

PATIENT
  Age: 80 Year
  Sex: Female
  Weight: 39.92 kg

DRUGS (12)
  1. VYALEV [Suspect]
     Active Substance: FOSCARBIDOPA\FOSLEVODOPA
     Indication: Parkinson^s disease
     Route: 058
     Dates: start: 20241210
  2. VYALEV [Suspect]
     Active Substance: FOSCARBIDOPA\FOSLEVODOPA
     Route: 058
     Dates: start: 202412, end: 202412
  3. VYALEV [Suspect]
     Active Substance: FOSCARBIDOPA\FOSLEVODOPA
     Route: 058
     Dates: start: 20241210, end: 20241210
  4. VYALEV [Suspect]
     Active Substance: FOSCARBIDOPA\FOSLEVODOPA
     Route: 058
     Dates: start: 202412, end: 202412
  5. VYALEV [Suspect]
     Active Substance: FOSCARBIDOPA\FOSLEVODOPA
     Route: 058
     Dates: end: 20250310
  6. VYALEV [Suspect]
     Active Substance: FOSCARBIDOPA\FOSLEVODOPA
     Route: 058
     Dates: start: 20250317
  7. FAMOTIDINE [Concomitant]
     Active Substance: FAMOTIDINE
     Indication: Product used for unknown indication
  8. SINEMET [Concomitant]
     Active Substance: CARBIDOPA\LEVODOPA
     Indication: Parkinson^s disease
     Route: 048
  9. ZOLPIDEM [Concomitant]
     Active Substance: ZOLPIDEM TARTRATE
     Indication: Product used for unknown indication
  10. ATORVASTATIN [Concomitant]
     Active Substance: ATORVASTATIN
     Indication: Product used for unknown indication
  11. TYLENOL [Concomitant]
     Active Substance: ACETAMINOPHEN
     Indication: Product used for unknown indication
  12. ESTRADIOL [Concomitant]
     Active Substance: ESTRADIOL
     Indication: Product used for unknown indication

REACTIONS (26)
  - Dopamine supersensitivity psychosis [Recovered/Resolved]
  - Toxicity to various agents [Recovered/Resolved]
  - Dopamine supersensitivity psychosis [Recovered/Resolved]
  - Confusional state [Recovered/Resolved]
  - Patient-device incompatibility [Recovering/Resolving]
  - On and off phenomenon [Unknown]
  - Overdose [Recovered/Resolved]
  - Oculogyric crisis [Recovered/Resolved]
  - Malabsorption [Unknown]
  - Dose calculation error [Recovered/Resolved]
  - Device difficult to use [Unknown]
  - Anxiety [Unknown]
  - Incorrect route of product administration [Recovered/Resolved]
  - Toxicity to various agents [Recovered/Resolved]
  - Dyskinesia [Recovered/Resolved]
  - Therapeutic product effect delayed [Unknown]
  - Drug level increased [Unknown]
  - Catheter site pain [Not Recovered/Not Resolved]
  - Dyskinesia [Recovered/Resolved]
  - Device issue [Unknown]
  - Product prescribing issue [Recovered/Resolved]
  - Incorrect dose administered [Unknown]
  - Catheter site pain [Recovered/Resolved]
  - Infusion site pain [Recovering/Resolving]
  - Medical device discomfort [Not Recovered/Not Resolved]
  - Incorrect route of product administration [Unknown]

NARRATIVE: CASE EVENT DATE: 20241201
